FAERS Safety Report 20569615 (Version 2)
Quarter: 2022Q2

REPORT INFORMATION
  Report Type: Spontaneous
  Country: BG (occurrence: BG)
  Receive Date: 20220309
  Receipt Date: 20220418
  Transmission Date: 20220721
  Serious: Yes (Other)
  Sender: FDA-Public Use
  Company Number: BG-ABBVIE-22K-022-4306642-00

PATIENT
  Age: 54 Year
  Sex: Female

DRUGS (1)
  1. HUMIRA [Suspect]
     Active Substance: ADALIMUMAB
     Indication: Psoriasis
     Route: 058
     Dates: start: 2017

REACTIONS (3)
  - Macular oedema [Unknown]
  - Localised oedema [Unknown]
  - Face oedema [Unknown]

NARRATIVE: CASE EVENT DATE: 20180101
